FAERS Safety Report 13233350 (Version 3)
Quarter: 2017Q2

REPORT INFORMATION
  Report Type: Report from Study
  Country: NL (occurrence: NL)
  Receive Date: 20170215
  Receipt Date: 20170414
  Transmission Date: 20170830
  Serious: Yes (Hospitalization)
  Sender: FDA-Public Use
  Company Number: NL-ROCHE-1892292

PATIENT
  Age: 54 Year
  Sex: Female

DRUGS (6)
  1. PANTOPRAZOL [Concomitant]
     Active Substance: PANTOPRAZOLE SODIUM
     Route: 065
     Dates: start: 20161020
  2. PARACETAMOL [Concomitant]
     Active Substance: ACETAMINOPHEN
  3. BEVACIZUMAB [Suspect]
     Active Substance: BEVACIZUMAB
     Indication: BREAST CANCER
     Dosage: DATE OF LAST DOSE PRIOR TO FIRST EPISODE OF FEVER: 12/JAN/2017?DATE OF LAST DOSE PRIOR TO SECOND EPI
     Route: 042
     Dates: start: 20151001
  4. DOMPERIDON [Concomitant]
     Active Substance: DOMPERIDONE
     Route: 065
     Dates: start: 20170112
  5. AUGMENTIN [Concomitant]
     Active Substance: AMOXICILLIN\CLAVULANATE POTASSIUM
     Indication: URINARY TRACT INFECTION
     Route: 065
     Dates: start: 20170204, end: 20170207
  6. TRAMAL [Concomitant]
     Active Substance: TRAMADOL
     Route: 065
     Dates: start: 20170203

REACTIONS (1)
  - Pyrexia [Recovered/Resolved]

NARRATIVE: CASE EVENT DATE: 20170130
